FAERS Safety Report 26037734 (Version 2)
Quarter: 2025Q4

REPORT INFORMATION
  Report Type: Spontaneous
  Country: US (occurrence: US)
  Receive Date: 20251112
  Receipt Date: 20251115
  Transmission Date: 20260117
  Serious: No
  Sender: ABBVIE
  Company Number: US-ABBVIE-6544511

PATIENT
  Age: 89 Year
  Sex: Male

DRUGS (2)
  1. CREON [Suspect]
     Active Substance: PANCRELIPASE AMYLASE\PANCRELIPASE LIPASE\PANCRELIPASE PROTEASE
     Indication: Pancreatic failure
     Dosage: LAST ADMIN DATE: 2025
     Route: 048
  2. CREON [Suspect]
     Active Substance: PANCRELIPASE AMYLASE\PANCRELIPASE LIPASE\PANCRELIPASE PROTEASE
     Indication: Pancreatic failure
     Dosage: DOUBLED DOSAGE
     Route: 048
     Dates: start: 20251110

REACTIONS (3)
  - Off label use [Unknown]
  - Therapeutic product effect decreased [Unknown]
  - Product storage error [Unknown]

NARRATIVE: CASE EVENT DATE: 20251105
